FAERS Safety Report 24270144 (Version 1)
Quarter: 2024Q3

REPORT INFORMATION
  Report Type: Spontaneous
  Country: CN (occurrence: CN)
  Receive Date: 20240830
  Receipt Date: 20240830
  Transmission Date: 20241017
  Serious: Yes (Hospitalization, Other)
  Sender: PFIZER
  Company Number: CN-PFIZER INC-PV202400111940

PATIENT
  Age: 39 Year
  Sex: Male
  Weight: 68.5 kg

DRUGS (1)
  1. PAXLOVID [Suspect]
     Active Substance: NIRMATRELVIR\RITONAVIR
     Indication: SARS-CoV-2 test positive
     Dosage: UNK UNK, 2X/DAY (NIRMATRELVIR TABLETS 300MG/RITONAVIR TABLETS 100MG, Q12H, CO-PACKAGED)
     Route: 048
     Dates: start: 20240808, end: 20240813

REACTIONS (7)
  - Rash [Recovering/Resolving]
  - Pruritus [Recovering/Resolving]
  - Erythema [Recovering/Resolving]
  - Drug eruption [Recovering/Resolving]
  - Dermatitis allergic [Recovering/Resolving]
  - Full blood count decreased [Unknown]
  - Condition aggravated [Unknown]

NARRATIVE: CASE EVENT DATE: 20240801
